FAERS Safety Report 9273630 (Version 2)
Quarter: 2013Q2

REPORT INFORMATION
  Report Type: Spontaneous
  Country: US (occurrence: US)
  Receive Date: 20130506
  Receipt Date: 20130604
  Transmission Date: 20140414
  Serious: No
  Sender: FDA-Public Use
  Company Number: US-AMGEN-USASP2013029294

PATIENT
  Age: 67 Year
  Sex: Male
  Weight: 86.16 kg

DRUGS (9)
  1. ENBREL [Suspect]
     Indication: RHEUMATOID ARTHRITIS
     Dosage: 50 MG, QWK
     Route: 058
  2. ATENOLOL [Concomitant]
     Dosage: 50 MG, UNK
  3. CLONAZEPAM [Concomitant]
     Dosage: 1 MG, UNK
  4. LAMOTRIGINE [Concomitant]
     Dosage: 200 MG, UNK
  5. CHLORTHALIDONE [Concomitant]
     Dosage: 25 MG, UNK
  6. LOSARTAN                           /01121602/ [Concomitant]
     Dosage: 100 MG, UNK
  7. FISH OIL [Concomitant]
     Dosage: UNK
  8. VITAMIN D                          /00107901/ [Concomitant]
     Dosage: 1000 UNIT, UNK
  9. ASPIRIN [Concomitant]
     Dosage: 81 MG, UNK

REACTIONS (4)
  - Injection site erythema [Unknown]
  - Injection site pruritus [Unknown]
  - Injection site reaction [Unknown]
  - Injection site swelling [Unknown]
